FAERS Safety Report 12954842 (Version 5)
Quarter: 2018Q3

REPORT INFORMATION
  Report Type: Report from Study
  Country: BR (occurrence: BR)
  Receive Date: 20161118
  Receipt Date: 20180902
  Transmission Date: 20181010
  Serious: Yes (Other)
  Sender: FDA-Public Use
  Company Number: PHHY2014BR125351

PATIENT
  Sex: Female
  Weight: 83 kg

DRUGS (5)
  1. SANDOSTATIN LAR DEPOT [Suspect]
     Active Substance: OCTREOTIDE ACETATE
     Indication: ACROMEGALY
     Dosage: 20 MG, QMO
     Route: 030
     Dates: start: 20100702
  2. CABERGOLINE. [Concomitant]
     Active Substance: CABERGOLINE
     Indication: ACROMEGALY
     Dosage: UNK, QW3
     Route: 048
  3. CABERGOLINE. [Concomitant]
     Active Substance: CABERGOLINE
     Dosage: 2 DF, QW
     Route: 048
  4. SANDOSTATIN LAR DEPOT [Suspect]
     Active Substance: OCTREOTIDE ACETATE
     Dosage: 30 MG, QMO/EVERY 28 DAYS
     Route: 030
     Dates: start: 201007
  5. CABERGOLINE. [Concomitant]
     Active Substance: CABERGOLINE
     Dosage: 5 MG, UNK
     Route: 048

REACTIONS (19)
  - Bone disorder [Recovered/Resolved]
  - Euphoric mood [Unknown]
  - Decreased appetite [Unknown]
  - Exostosis [Unknown]
  - Fear of injection [Unknown]
  - Spinal disorder [Recovered/Resolved with Sequelae]
  - Asthenia [Unknown]
  - Ill-defined disorder [Unknown]
  - Spinal pain [Not Recovered/Not Resolved]
  - Malaise [Unknown]
  - Nervousness [Unknown]
  - Insulin-like growth factor increased [Recovered/Resolved]
  - Dizziness [Unknown]
  - Vomiting [Unknown]
  - Pain [Unknown]
  - Bone disorder [Unknown]
  - Gait disturbance [Recovered/Resolved with Sequelae]
  - Cartilage injury [Recovered/Resolved]
  - Arthralgia [Recovered/Resolved]

NARRATIVE: CASE EVENT DATE: 2016
